FAERS Safety Report 8858515 (Version 2)
Quarter: 2012Q4

REPORT INFORMATION
  Report Type: Report from Study
  Country: PK (occurrence: PK)
  Receive Date: 20121024
  Receipt Date: 20121119
  Transmission Date: 20130627
  Serious: Yes (Death)
  Sender: FDA-Public Use
  Company Number: PHHY2012PK094671

PATIENT

DRUGS (1)
  1. VAA489A [Suspect]
     Dosage: 1 DF (80mg valsa and 5mg amlo), UNK

REACTIONS (1)
  - Myocardial infarction [Fatal]
